FAERS Safety Report 7040413-5 (Version None)
Quarter: 2010Q4

REPORT INFORMATION
  Report Type: 
  Country: None (occurrence: None)
  Receive Date: 20101008
  Receipt Date: 20101008
  Transmission Date: 20110411
  Serious: Yes (Other)
  Sender: FDA-Public Use
  Company Number: None

PATIENT
  Sex: Female
  Weight: 87.5442 kg

DRUGS (1)
  1. OXYCONTIN [Suspect]
     Indication: PAIN
     Dosage: 40 MG 2X - 3X DAY
     Dates: start: 20100911, end: 20100918

REACTIONS (9)
  - ABDOMINAL PAIN UPPER [None]
  - DRUG EFFECT DECREASED [None]
  - FEELING COLD [None]
  - GASTROINTESTINAL MOTILITY DISORDER [None]
  - HYPERHIDROSIS [None]
  - PRODUCT QUALITY ISSUE [None]
  - RETCHING [None]
  - VOMITING [None]
  - WITHDRAWAL SYNDROME [None]
